FAERS Safety Report 14569256 (Version 1)
Quarter: 2018Q1

REPORT INFORMATION
  Report Type: Spontaneous
  Country: US (occurrence: US)
  Receive Date: 20180220
  Receipt Date: 20180220
  Transmission Date: 20180509
  Serious: Yes (Other)
  Sender: FDA-Public Use
  Company Number: None

PATIENT
  Sex: Male

DRUGS (8)
  1. LEVETIRACETAM. [Concomitant]
     Active Substance: LEVETIRACETAM
  2. ZYTIGA [Suspect]
     Active Substance: ABIRATERONE ACETATE
     Indication: NEOPLASM MALIGNANT
     Route: 048
     Dates: start: 20180203
  3. PREDNISONE. [Suspect]
     Active Substance: PREDNISONE
     Indication: NEOPLASM MALIGNANT
     Route: 048
     Dates: start: 20180203
  4. AMLODIPINE [Concomitant]
     Active Substance: AMLODIPINE BESYLATE
  5. ATORVASTATIN [Concomitant]
     Active Substance: ATORVASTATIN
  6. FUROSEMIDE. [Concomitant]
     Active Substance: FUROSEMIDE
  7. METOPROLOL. [Concomitant]
     Active Substance: METOPROLOL
  8. TORESEMIDE [Concomitant]
     Active Substance: TORSEMIDE

REACTIONS (2)
  - Apparent death [None]
  - Therapy cessation [None]
